FAERS Safety Report 8530394-7 (Version None)
Quarter: 2012Q3

REPORT INFORMATION
  Report Type: 
  Country: None (occurrence: None)
  Receive Date: 20120723
  Receipt Date: 20120710
  Transmission Date: 20120928
  Serious: Yes (Other)
  Sender: FDA-Public Use
  Company Number: DK-PFIZER INC-2012167313

PATIENT
  Sex: Female

DRUGS (1)
  1. CYTOTEC [Suspect]
     Dosage: UNK
     Dates: start: 20120501

REACTIONS (3)
  - UTERINE HAEMORRHAGE [None]
  - PREMATURE SEPARATION OF PLACENTA [None]
  - OFF LABEL USE [None]
